FAERS Safety Report 17611927 (Version 1)
Quarter: 2020Q2

REPORT INFORMATION
  Report Type: Report from Study
  Country: AU (occurrence: AU)
  Receive Date: 20200401
  Receipt Date: 20200401
  Transmission Date: 20200713
  Serious: Yes (Other)
  Sender: FDA-Public Use
  Company Number: AU-MYLANLABS-2020M1031899

PATIENT
  Age: 22 Year
  Sex: Male

DRUGS (1)
  1. EMTRICITABINE/TENOFOVIR DISOPROXIL FUMARATE [Suspect]
     Active Substance: EMTRICITABINE\TENOFOVIR DISOPROXIL FUMARATE
     Indication: PROPHYLAXIS
     Dosage: UNK
     Route: 048
     Dates: start: 20191106, end: 20200316

REACTIONS (5)
  - Chlamydial infection [Unknown]
  - Expired product administered [Unknown]
  - Seroconversion test [Not Recovered/Not Resolved]
  - Syphilis [Unknown]
  - Gonorrhoea [Unknown]

NARRATIVE: CASE EVENT DATE: 20200311
